FAERS Safety Report 7357443-6 (Version None)
Quarter: 2011Q1

REPORT INFORMATION
  Report Type: 
  Country: None (occurrence: None)
  Receive Date: 20110317
  Receipt Date: 20110307
  Transmission Date: 20110831
  Serious: Yes (Life-Threatening, Other)
  Sender: FDA-Public Use
  Company Number: CO-BAYER-2011-020596

PATIENT
  Sex: Female

DRUGS (3)
  1. PROVERA [Concomitant]
     Indication: VAGINAL HAEMORRHAGE
  2. MIRENA [Suspect]
     Indication: ENDOMETRIAL HYPERPLASIA
     Dosage: UNK
     Dates: start: 20050525, end: 20091211
  3. PRIMOSISTON [Concomitant]
     Indication: VAGINAL HAEMORRHAGE

REACTIONS (1)
  - ENDOMETRIAL CANCER [None]
